FAERS Safety Report 17196810 (Version 1)
Quarter: 2019Q4

REPORT INFORMATION
  Report Type: Spontaneous
  Country: US (occurrence: US)
  Receive Date: 20191224
  Receipt Date: 20191224
  Transmission Date: 20200122
  Serious: No
  Sender: FDA-Public Use
  Company Number: US-009507513-1912USA008680

PATIENT
  Age: 5 Week
  Sex: Male

DRUGS (1)
  1. PRIMAXIN IV [Suspect]
     Active Substance: CILASTATIN SODIUM\IMIPENEM
     Indication: MENINGITIS NEONATAL

REACTIONS (1)
  - Product administered to patient of inappropriate age [Unknown]
